FAERS Safety Report 10267716 (Version 1)
Quarter: 2014Q2

REPORT INFORMATION
  Report Type: Spontaneous
  Country: US (occurrence: US)
  Receive Date: 20140630
  Receipt Date: 20140630
  Transmission Date: 20141212
  Serious: No
  Sender: FDA-Public Use
  Company Number: US-BAYER-2014-090501

PATIENT
  Age: 76 Year
  Sex: Female

DRUGS (4)
  1. ALEVE CAPLET [Suspect]
     Indication: MUSCULOSKELETAL PAIN
     Route: 048
  2. BAYER CHEWABLE LOW DOSE ASPIRIN CHERRY FLAVORED [Interacting]
     Route: 048
  3. SIMETHICONE [Concomitant]
  4. HYDROCHLOROTHIAZIDE [Concomitant]

REACTIONS (2)
  - Drug ineffective [None]
  - Drug interaction [None]
